FAERS Safety Report 24174565 (Version 2)
Quarter: 2024Q3

REPORT INFORMATION
  Report Type: Report from Study
  Country: TW (occurrence: None)
  Receive Date: 20240805
  Receipt Date: 20240902
  Transmission Date: 20241017
  Serious: Yes (Death)
  Sender: ASTRAZENECA
  Company Number: 2024A176592

PATIENT
  Sex: Male

DRUGS (1)
  1. IMFINZI [Suspect]
     Active Substance: DURVALUMAB
     Dosage: 1500.0MG UNKNOWN
     Route: 041
     Dates: start: 20240531

REACTIONS (3)
  - Acute kidney injury [Fatal]
  - Nasopharyngeal cancer [Fatal]
  - Tumour haemorrhage [Fatal]
